FAERS Safety Report 25552591 (Version 1)
Quarter: 2025Q3

REPORT INFORMATION
  Report Type: Spontaneous
  Country: JP (occurrence: JP)
  Receive Date: 20250715
  Receipt Date: 20250715
  Transmission Date: 20251020
  Serious: Yes (Other)
  Sender: Norvium Bioscience
  Company Number: JP-Norvium Bioscience LLC-080394

PATIENT
  Age: 78 Year
  Sex: Male
  Weight: 0 kg

DRUGS (3)
  1. GEMCITABINE [Suspect]
     Active Substance: GEMCITABINE
     Indication: Pancreatic carcinoma
  2. PACLITAXEL [Suspect]
     Active Substance: PACLITAXEL
     Indication: Pancreatic carcinoma
  3. DEXAMETHASONE [Suspect]
     Active Substance: DEXAMETHASONE
     Indication: Pancreatic carcinoma

REACTIONS (1)
  - Pneumocystis jirovecii pneumonia [Recovering/Resolving]
